FAERS Safety Report 4612087-1 (Version None)
Quarter: 2005Q2

REPORT INFORMATION
  Report Type: 
  Country: None (occurrence: None)
  Receive Date: 20050308
  Receipt Date: 20041227
  Transmission Date: 20051028
  Serious: Yes (Other)
  Sender: FDA-Public Use
  Company Number: 2004UW26171

PATIENT
  Age: 61 Year
  Sex: Male
  Weight: 98.883 kg

DRUGS (7)
  1. CRESTOR [Suspect]
     Indication: BLOOD CHOLESTEROL INCREASED
     Dosage: 10 MG PO
     Route: 048
     Dates: start: 20040708, end: 20040810
  2. ALTACE [Concomitant]
  3. TENORETIC 100 [Concomitant]
  4. IMDUR [Concomitant]
  5. TENORMIN [Concomitant]
  6. PLAVIX [Concomitant]
  7. ASPIRIN [Concomitant]

REACTIONS (4)
  - IDIOSYNCRATIC DRUG REACTION [None]
  - PAIN [None]
  - PHARYNGOLARYNGEAL PAIN [None]
  - STOMATITIS [None]
